FAERS Safety Report 9510752 (Version 10)
Quarter: 2016Q4

REPORT INFORMATION
  Report Type: Spontaneous
  Country: CA (occurrence: CA)
  Receive Date: 20130910
  Receipt Date: 20161010
  Transmission Date: 20170207
  Serious: Yes (Other)
  Sender: FDA-Public Use
  Company Number: CA-ROCHE-GNE300196

PATIENT
  Age: 67 Year
  Sex: Male
  Weight: 140 kg

DRUGS (18)
  1. XOLAIR [Suspect]
     Active Substance: OMALIZUMAB
     Route: 058
     Dates: start: 20130903
  2. SALBUTAMOL [Concomitant]
     Active Substance: ALBUTEROL
     Indication: PRODUCT USED FOR UNKNOWN INDICATION
     Route: 065
  3. PREDNISONE. [Concomitant]
     Active Substance: PREDNISONE
     Dosage: SECOND COURSE
     Route: 065
  4. XOLAIR [Suspect]
     Active Substance: OMALIZUMAB
     Route: 058
     Dates: start: 20160714
  5. VENTOLINE [Concomitant]
     Active Substance: ALBUTEROL
     Dosage: 2 PUFFS TWICE A WEEK
     Route: 065
  6. PREDNISONE. [Concomitant]
     Active Substance: PREDNISONE
     Indication: PRODUCT USED FOR UNKNOWN INDICATION
     Dosage: 40-50MG FOR 14 DAYS
     Route: 065
  7. VENTOLINE [Concomitant]
     Active Substance: ALBUTEROL
     Indication: PRODUCT USED FOR UNKNOWN INDICATION
     Dosage: 3-4 PUFFS
     Route: 065
  8. PREDNISONE. [Concomitant]
     Active Substance: PREDNISONE
     Route: 065
     Dates: start: 201607, end: 201608
  9. XOLAIR [Suspect]
     Active Substance: OMALIZUMAB
     Indication: ASTHMA
     Route: 058
     Dates: start: 20060123
  10. XOLAIR [Suspect]
     Active Substance: OMALIZUMAB
     Route: 058
     Dates: start: 20100329
  11. XOLAIR [Suspect]
     Active Substance: OMALIZUMAB
     Route: 058
     Dates: start: 20141014
  12. VENTOLINE [Concomitant]
     Active Substance: ALBUTEROL
     Dosage: 2 DF (2 PUFFS 3-4 TIMES PER DAY OCCASIONALLY)
     Route: 065
  13. VENTOLINE [Concomitant]
     Active Substance: ALBUTEROL
     Dosage: 400 UG, 4 DF (4 PUFFS), UNK
     Route: 065
  14. PREDNISONE. [Concomitant]
     Active Substance: PREDNISONE
     Route: 065
     Dates: start: 201510, end: 201511
  15. XOLAIR [Suspect]
     Active Substance: OMALIZUMAB
     Route: 058
     Dates: start: 20150929
  16. ADVAIR HFA [Concomitant]
     Active Substance: FLUTICASONE PROPIONATE\SALMETEROL XINAFOATE
     Indication: PRODUCT USED FOR UNKNOWN INDICATION
     Route: 065
  17. NASONEX [Concomitant]
     Active Substance: MOMETASONE FUROATE
     Indication: PRODUCT USED FOR UNKNOWN INDICATION
     Route: 065
  18. PREDNISONE. [Concomitant]
     Active Substance: PREDNISONE
     Indication: BRONCHITIS
     Dosage: 40 MG, QD (FIRST COURSE)
     Route: 065

REACTIONS (20)
  - Wheezing [Unknown]
  - Rales [Unknown]
  - Respiratory tract congestion [Unknown]
  - Cough [Unknown]
  - Blood pressure increased [Unknown]
  - Productive cough [Unknown]
  - Middle insomnia [Unknown]
  - Gout [Unknown]
  - Joint swelling [Unknown]
  - Respiratory rate decreased [Unknown]
  - Sputum discoloured [Unknown]
  - Nasopharyngitis [Unknown]
  - Forced expiratory volume decreased [Unknown]
  - Vital capacity decreased [Unknown]
  - Obstructive airways disorder [Unknown]
  - Incorrect dose administered [Unknown]
  - Herpes zoster [Recovered/Resolved]
  - Bronchitis [Unknown]
  - Asthma [Unknown]
  - Dyspnoea [Unknown]

NARRATIVE: CASE EVENT DATE: 20141014
